FAERS Safety Report 22306673 (Version 1)
Quarter: 2023Q2

REPORT INFORMATION
  Report Type: Other
  Country: US (occurrence: None)
  Receive Date: 20230511
  Receipt Date: 20230511
  Transmission Date: 20230722
  Serious: Yes (Death)
  Sender: FDA-Public Use
  Company Number: US-ROCHE-3333084

PATIENT
  Age: 69 Year
  Sex: Male
  Weight: 61.290 kg

DRUGS (1)
  1. OCREVUS [Suspect]
     Active Substance: OCRELIZUMAB
     Indication: Relapsing multiple sclerosis
     Dosage: INFUSE 600MG INTRAVENOUSLY EVERY 6 MONTH, DATE OF INFUSION: 16/AUG/2022, NEXT INFUSION: 23/FEB/2023,
     Route: 042

REACTIONS (2)
  - Cerebral haemorrhage [Fatal]
  - Headache [Fatal]

NARRATIVE: CASE EVENT DATE: 20230411
